FAERS Safety Report 6074702-8 (Version None)
Quarter: 2009Q1

REPORT INFORMATION
  Report Type: 
  Country: None (occurrence: None)
  Receive Date: 20090210
  Receipt Date: 20090210
  Transmission Date: 20090719
  Serious: No
  Sender: FDA-Public Use
  Company Number: None

PATIENT
  Sex: Female
  Weight: 87.73 kg

DRUGS (12)
  1. SIMVASTATIN [Suspect]
     Dosage: 20MG TABLET 20 MG QHS ORAL
     Route: 048
     Dates: start: 20081203, end: 20090210
  2. ALDARA [Concomitant]
  3. ALLEGRA [Concomitant]
  4. CLINDAMYCIN HCL [Concomitant]
  5. DOXYCYCLINE [Concomitant]
  6. EPINEPHRINE AUTOINJECTOR [Concomitant]
  7. ESTRING [Concomitant]
  8. FINACEA [Concomitant]
  9. HYDROCORTISONE [Concomitant]
  10. INDERAL [Concomitant]
  11. PROAIR HFA [Concomitant]
  12. SINGULAIR [Concomitant]

REACTIONS (2)
  - JOINT SWELLING [None]
  - OEDEMA PERIPHERAL [None]
